FAERS Safety Report 6398822-3 (Version None)
Quarter: 2009Q4

REPORT INFORMATION
  Report Type: 
  Country: None (occurrence: None)
  Receive Date: 20091013
  Receipt Date: 20091009
  Transmission Date: 20100525
  Serious: Yes (Other)
  Sender: FDA-Public Use
  Company Number: FR-ROXANE LABORATORIES, INC.-2009-RO-01036RO

PATIENT
  Age: 25 Year
  Sex: Female

DRUGS (5)
  1. TOPIRAMATE [Suspect]
     Indication: EPILEPSY
     Dosage: 1 G
  2. LAMOTRIGINE [Suspect]
     Indication: EPILEPSY
     Dosage: 400 MG
  3. OXCARBAZEPINE [Suspect]
     Indication: EPILEPSY
     Dosage: 150 MG
  4. CLONAZEPAM [Suspect]
     Indication: EPILEPSY
     Dosage: 20 MG
  5. FOLIC ACID [Suspect]
     Indication: EPILEPSY
     Dosage: 0.4 MG

REACTIONS (2)
  - CONVULSION [None]
  - TERATOGENICITY [None]
